FAERS Safety Report 9837410 (Version 1)
Quarter: 2014Q1

REPORT INFORMATION
  Report Type: Spontaneous
  Country: US (occurrence: None)
  Receive Date: 20140117
  Receipt Date: 20140117
  Transmission Date: 20141002
  Serious: Yes (Life-Threatening, Hospitalization, Disabling)
  Sender: FDA-Public Use
  Company Number: None

PATIENT
  Age: 46 Year
  Sex: Male
  Weight: 77.11 kg

DRUGS (1)
  1. ANDRODERM [Suspect]
     Dosage: 1 PATCH ONCE DAILY APPLIED AS MEDICATED PATCH TO SKIN
     Route: 062

REACTIONS (2)
  - Prostate cancer [None]
  - Portal vein thrombosis [None]
